FAERS Safety Report 14931424 (Version 1)
Quarter: 2018Q2

REPORT INFORMATION
  Report Type: Spontaneous
  Country: DK (occurrence: DK)
  Receive Date: 20180524
  Receipt Date: 20180524
  Transmission Date: 20180711
  Serious: Yes (Hospitalization)
  Sender: FDA-Public Use
  Company Number: DK-TEVA-2018-DK-895820

PATIENT
  Age: 73 Year
  Sex: Male

DRUGS (4)
  1. BIOCLAVID [Suspect]
     Active Substance: AMOXICILLIN\CLAVULANIC ACID
     Indication: PNEUMONIA
     Dosage: 3 DOSAGE FORMS DAILY; STRENGTH: 500+ 125 MG
     Route: 048
     Dates: start: 20180212, end: 20180316
  2. PREDNISOLONE. [Concomitant]
     Active Substance: PREDNISOLONE
     Indication: ADRENOCORTICAL STEROID THERAPY
     Dosage: 25 MILLIGRAM DAILY;
     Route: 048
  3. BLOXAZOC [Suspect]
     Active Substance: METOPROLOL SUCCINATE
     Indication: HEART RATE IRREGULAR
     Dosage: 100 MILLIGRAM DAILY;
     Route: 048
     Dates: start: 20180111, end: 20180317
  4. PANTOPRAZOLE ^ACTAVIS^ [Suspect]
     Active Substance: PANTOPRAZOLE SODIUM
     Indication: GASTRIC ULCER
     Dosage: 80 MILLIGRAM DAILY;
     Route: 048
     Dates: start: 20180215, end: 20180317

REACTIONS (2)
  - Hepatic enzyme increased [Recovering/Resolving]
  - Hyperglycaemia [Recovering/Resolving]

NARRATIVE: CASE EVENT DATE: 20180215
